FAERS Safety Report 18237912 (Version 1)
Quarter: 2020Q3

REPORT INFORMATION
  Report Type: Spontaneous
  Country: US (occurrence: US)
  Receive Date: 20200907
  Receipt Date: 20200907
  Transmission Date: 20201103
  Serious: Yes (Death, Hospitalization, Other)
  Sender: FDA-Public Use
  Company Number: US-AMGEN-USASP2020142685

PATIENT

DRUGS (1)
  1. CARFILZOMIB [Suspect]
     Active Substance: CARFILZOMIB
     Indication: PLASMA CELL MYELOMA
     Dosage: UNK
     Route: 065

REACTIONS (9)
  - Prostate cancer [Unknown]
  - Renal cell carcinoma [Unknown]
  - Bladder cancer [Unknown]
  - Death [Fatal]
  - Myelofibrosis [Unknown]
  - Unevaluable event [Unknown]
  - Plasma cell myeloma [Unknown]
  - Myelodysplastic syndrome [Unknown]
  - Therapy partial responder [Unknown]
